FAERS Safety Report 17018144 (Version 8)
Quarter: 2022Q1

REPORT INFORMATION
  Report Type: Report from Study
  Country: BR (occurrence: BR)
  Receive Date: 20191111
  Receipt Date: 20220216
  Transmission Date: 20220424
  Serious: Yes (Hospitalization, Other)
  Sender: FDA-Public Use
  Company Number: BR-BIOGENIDEC-2010BI002888

PATIENT
  Sex: Female

DRUGS (26)
  1. AVONEX PEN [Suspect]
     Active Substance: INTERFERON BETA-1A
     Indication: Multiple sclerosis
     Route: 030
     Dates: start: 2005, end: 201210
  2. AVONEX PEN [Suspect]
     Active Substance: INTERFERON BETA-1A
     Route: 030
     Dates: start: 201210
  3. AVONEX PEN [Suspect]
     Active Substance: INTERFERON BETA-1A
     Route: 030
     Dates: start: 20121105, end: 201604
  4. AVONEX PEN [Suspect]
     Active Substance: INTERFERON BETA-1A
     Route: 030
     Dates: start: 20181001
  5. AVONEX PEN [Suspect]
     Active Substance: INTERFERON BETA-1A
     Route: 030
     Dates: start: 20181001
  6. AVONEX PEN [Suspect]
     Active Substance: INTERFERON BETA-1A
     Route: 030
     Dates: start: 2012, end: 2017
  7. AVONEX PEN [Suspect]
     Active Substance: INTERFERON BETA-1A
     Route: 030
     Dates: start: 201810
  8. AVONEX PEN [Suspect]
     Active Substance: INTERFERON BETA-1A
     Route: 030
     Dates: start: 2005, end: 2016
  9. AVONEX PEN [Suspect]
     Active Substance: INTERFERON BETA-1A
     Route: 030
     Dates: start: 20181001
  10. AVONEX [Suspect]
     Active Substance: INTERFERON BETA-1A
     Indication: Multiple sclerosis
     Route: 030
     Dates: start: 200205, end: 2005
  11. AVONEX [Suspect]
     Active Substance: INTERFERON BETA-1A
     Route: 030
     Dates: start: 2005, end: 2011
  12. AVONEX [Suspect]
     Active Substance: INTERFERON BETA-1A
  13. AVONEX [Suspect]
     Active Substance: INTERFERON BETA-1A
  14. ALPRAZOLAM [Concomitant]
     Active Substance: ALPRAZOLAM
     Indication: Insomnia
     Route: 065
  15. hyperic dry extract [Concomitant]
     Indication: Irritable bowel syndrome
     Route: 065
  16. hyperic dry extract [Concomitant]
     Route: 065
     Dates: start: 2019
  17. hyperic dry extract [Concomitant]
     Route: 048
  18. RANITIDINE [Concomitant]
     Active Substance: RANITIDINE
     Indication: Gastric disorder
     Route: 048
     Dates: start: 2001
  19. RANITIDINE [Concomitant]
     Active Substance: RANITIDINE
     Route: 048
  20. SIMVASTATIN [Concomitant]
     Active Substance: SIMVASTATIN
     Indication: Inflammation
     Route: 065
  21. SIMVASTATIN [Concomitant]
     Active Substance: SIMVASTATIN
     Route: 065
     Dates: start: 2018
  22. Lonium (Otilonium Bromide) [Concomitant]
     Indication: Irritable bowel syndrome
     Route: 065
  23. Lonium (Otilonium Bromide) [Concomitant]
     Route: 065
     Dates: start: 2006, end: 2018
  24. MAGNESIUM ASPARTATE [Concomitant]
     Active Substance: MAGNESIUM ASPARTATE
     Indication: Product used for unknown indication
     Route: 065
  25. OMEPRAZOLE [Concomitant]
     Active Substance: OMEPRAZOLE
     Indication: Pain prophylaxis
     Route: 065
  26. OMEPRAZOLE [Concomitant]
     Active Substance: OMEPRAZOLE
     Route: 065

REACTIONS (21)
  - Breast cancer in situ [Recovered/Resolved]
  - Uterine leiomyoma [Recovered/Resolved]
  - Benign neoplasm of bladder [Recovered/Resolved]
  - Ovarian fibroma [Unknown]
  - Febrile convulsion [Recovered/Resolved]
  - Hemiplegia [Recovered/Resolved]
  - Urinary incontinence [Recovered/Resolved]
  - Breast mass [Recovered/Resolved]
  - Retching [Recovered/Resolved]
  - Gait inability [Unknown]
  - Haemorrhage [Unknown]
  - Osteopenia [Unknown]
  - Multiple sclerosis relapse [Recovered/Resolved]
  - Headache [Recovered/Resolved]
  - Pyrexia [Recovered/Resolved]
  - Chills [Recovered/Resolved]
  - Fatigue [Recovered/Resolved]
  - Pain [Recovered/Resolved]
  - Injection site pain [Not Recovered/Not Resolved]
  - Nausea [Unknown]
  - Hyperhidrosis [Recovered/Resolved]

NARRATIVE: CASE EVENT DATE: 20050101
